FAERS Safety Report 13336568 (Version 6)
Quarter: 2017Q4

REPORT INFORMATION
  Report Type: Spontaneous
  Country: IT (occurrence: IT)
  Receive Date: 20170315
  Receipt Date: 20171221
  Transmission Date: 20180320
  Serious: Yes (Hospitalization)
  Sender: FDA-Public Use
  Company Number: IT-AUROBINDO-AUR-APL-2017-31034

PATIENT
  Age: 24 Year
  Sex: Female

DRUGS (4)
  1. FLUOXETINE [Suspect]
     Active Substance: FLUOXETINE HYDROCHLORIDE
     Indication: PRODUCT USED FOR UNKNOWN INDICATION
  2. QUETIAPINE FILM-COATED TABLET [Suspect]
     Active Substance: QUETIAPINE
     Indication: PRODUCT USED FOR UNKNOWN INDICATION
     Dosage: 2000 MG, ONCE/SINGLE; IN TOTAL
     Route: 048
     Dates: start: 20170222, end: 20170222
  3. LITHIUM. [Suspect]
     Active Substance: LITHIUM
     Indication: PRODUCT USED FOR UNKNOWN INDICATION
     Dosage: 450 MG ONCE/SINGLE ; IN TOTAL
     Route: 048
     Dates: start: 20170222, end: 20170222
  4. FLUOXETINE [Suspect]
     Active Substance: FLUOXETINE HYDROCHLORIDE
     Indication: PRODUCT USED FOR UNKNOWN INDICATION
     Dosage: 200 MG, ONCE/SINGLE ; IN TOTAL
     Route: 048
     Dates: start: 20170222, end: 20170222

REACTIONS (2)
  - Drug abuse [Unknown]
  - Intentional self-injury [Unknown]

NARRATIVE: CASE EVENT DATE: 20170222
